FAERS Safety Report 12812620 (Version 1)
Quarter: 2016Q4

REPORT INFORMATION
  Report Type: Spontaneous
  Country: US (occurrence: US)
  Receive Date: 20161005
  Receipt Date: 20161005
  Transmission Date: 20170207
  Serious: Yes (Other)
  Sender: FDA-Public Use
  Company Number: US-ELI_LILLY_AND_COMPANY-US201609010396

PATIENT
  Age: 20 Year
  Sex: Female

DRUGS (2)
  1. CYMBALTA [Suspect]
     Active Substance: DULOXETINE HYDROCHLORIDE
     Indication: ANXIETY
     Dosage: UNK, UNKNOWN
     Route: 065
     Dates: start: 2013
  2. DULOXETINE HYDROCHLORIDE. [Suspect]
     Active Substance: DULOXETINE HYDROCHLORIDE
     Indication: ANXIETY
     Dosage: UNK UNK, UNKNOWN
     Route: 065
     Dates: start: 201312

REACTIONS (9)
  - Depression [Unknown]
  - Decreased appetite [Unknown]
  - Anxiety [Unknown]
  - Hot flush [Unknown]
  - Panic attack [Not Recovered/Not Resolved]
  - Drug ineffective [Unknown]
  - Paraesthesia [Unknown]
  - Suicidal ideation [Unknown]
  - Hyperhidrosis [Unknown]

NARRATIVE: CASE EVENT DATE: 201410
